FAERS Safety Report 5087920-2 (Version None)
Quarter: 2006Q3

REPORT INFORMATION
  Report Type: 
  Country: None (occurrence: None)
  Receive Date: 20060821
  Receipt Date: 20060804
  Transmission Date: 20061208
  Serious: Yes (Other)
  Sender: FDA-Public Use
  Company Number: TRP_0842_2006

PATIENT
  Age: 49 Year
  Sex: Female
  Weight: 64.4108 kg

DRUGS (5)
  1. RIBASPHERE [Suspect]
     Indication: HEPATITIS C
     Dosage: DF UNK PO
     Route: 048
     Dates: start: 20060526, end: 20060614
  2. PEG-INTRON [Suspect]
     Indication: HEPATITIS C
     Dosage: DF UNK SC
     Route: 058
     Dates: start: 20060526, end: 20060614
  3. RIBASPHERE [Suspect]
     Indication: HEPATITIS C
     Dosage: DF UNK PO
     Route: 048
     Dates: start: 20060706
  4. PEG-INTRON [Suspect]
     Indication: HEPATITIS C
     Dosage: DF UNK SC
     Route: 058
     Dates: start: 20060706
  5. EFFEXOR [Concomitant]

REACTIONS (16)
  - ABDOMINAL DISCOMFORT [None]
  - ABDOMINAL PAIN UPPER [None]
  - ASTHENIA [None]
  - CONSTIPATION [None]
  - DEPRESSION [None]
  - DRUG ADMINISTRATION ERROR [None]
  - GASTROINTESTINAL MOTILITY DISORDER [None]
  - HAEMATOCHEZIA [None]
  - INFLUENZA LIKE ILLNESS [None]
  - INJECTION SITE ERYTHEMA [None]
  - MUSCLE ATROPHY [None]
  - NAUSEA [None]
  - ROTATOR CUFF SYNDROME [None]
  - TONGUE BLISTERING [None]
  - TREATMENT NONCOMPLIANCE [None]
  - WEIGHT DECREASED [None]
